FAERS Safety Report 7462618-1 (Version None)
Quarter: 2011Q2

REPORT INFORMATION
  Report Type: 
  Country: None (occurrence: None)
  Receive Date: 20110506
  Receipt Date: 20110425
  Transmission Date: 20111010
  Serious: Yes (Life-Threatening, Hospitalization, Other)
  Sender: FDA-Public Use
  Company Number: US-CELGENEUS-163-20785-10062008

PATIENT
  Sex: Female
  Weight: 111.23 kg

DRUGS (13)
  1. THALOMID [Suspect]
     Dosage: 50 MILLIGRAM
     Route: 048
     Dates: start: 20091222, end: 20100118
  2. THALOMID [Suspect]
     Indication: MULTIPLE MYELOMA
     Dosage: 100 MILLIGRAM
     Route: 048
     Dates: start: 20090930
  3. DECADRON [Concomitant]
     Dosage: 20 MILLIGRAM
     Route: 065
  4. DECADRON [Concomitant]
     Indication: MULTIPLE MYELOMA
     Dosage: 4 MILLIGRAM
     Route: 051
     Dates: start: 20090901
  5. VELCADE [Concomitant]
     Dosage: 1 MILLIGRAM/SQ. METER
     Route: 065
     Dates: start: 20091214
  6. VELCADE [Concomitant]
     Indication: MULTIPLE MYELOMA
     Dosage: 2.6 MILLIGRAM/SQ. METER
     Route: 065
     Dates: start: 20090901
  7. DECADRON [Concomitant]
     Dosage: 10 MILLIGRAM
     Route: 065
     Dates: start: 20091201
  8. COUMADIN [Suspect]
     Indication: PULMONARY EMBOLISM
     Route: 065
     Dates: start: 20100101, end: 20100101
  9. COUMADIN [Suspect]
  10. VELCADE [Concomitant]
     Dosage: .8 MILLIGRAM/SQ. METER
     Route: 065
     Dates: start: 20100111
  11. KYTRIL [Concomitant]
     Indication: MULTIPLE MYELOMA
     Dosage: 1 MILLIGRAM
     Route: 065
  12. ASPIRIN [Concomitant]
     Indication: MULTIPLE MYELOMA
     Dosage: 325 MILLIGRAM
     Route: 065
     Dates: start: 20090923, end: 20100118
  13. ALBUTEROL [Concomitant]
     Route: 065
     Dates: start: 20100601

REACTIONS (6)
  - PULMONARY EMBOLISM [None]
  - DEEP VEIN THROMBOSIS [None]
  - URINARY RETENTION [None]
  - INTERNATIONAL NORMALISED RATIO INCREASED [None]
  - NEUROPATHY PERIPHERAL [None]
  - RENAL FAILURE [None]
